FAERS Safety Report 20138282 (Version 1)
Quarter: 2021Q4

REPORT INFORMATION
  Report Type: Spontaneous
  Country: CA (occurrence: CA)
  Receive Date: 20211202
  Receipt Date: 20211202
  Transmission Date: 20220303
  Serious: Yes (Other)
  Sender: FDA-Public Use
  Company Number: CA-ABBVIE-21K-028-4181180-00

PATIENT
  Age: 22 Year
  Sex: Female

DRUGS (2)
  1. VALPROIC ACID [Suspect]
     Active Substance: VALPROIC ACID
     Indication: Seizure
     Route: 065
  2. CHLORPHENIRAMINE MALEATE\IBUPROFEN\PSEUDOEPHEDRINE HYDROCHLORIDE [Suspect]
     Active Substance: CHLORPHENIRAMINE MALEATE\IBUPROFEN\PSEUDOEPHEDRINE HYDROCHLORIDE
     Indication: Product used for unknown indication
     Route: 065

REACTIONS (3)
  - Rectal haemorrhage [Unknown]
  - Coeliac disease [Unknown]
  - Constipation [Unknown]

NARRATIVE: CASE EVENT DATE: 20200627
